FAERS Safety Report 6930590-6 (Version None)
Quarter: 2010Q3

REPORT INFORMATION
  Report Type: 
  Country: None (occurrence: None)
  Receive Date: 20100818
  Receipt Date: 20100809
  Transmission Date: 20110219
  Serious: Yes (Hospitalization, Other)
  Sender: FDA-Public Use
  Company Number: US-PFIZER INC-2010067996

PATIENT
  Sex: Female

DRUGS (4)
  1. CHANTIX [Suspect]
     Indication: SMOKING CESSATION THERAPY
     Dosage: 1 MG, UNK
     Dates: start: 20080301, end: 20080601
  2. TOPAMAX [Concomitant]
     Indication: MIGRAINE
     Dosage: UNK
     Dates: start: 20040101
  3. TOPAMAX [Concomitant]
     Indication: CONVULSION
  4. LEXAPRO [Concomitant]
     Indication: DEPRESSION
     Dosage: UNK
     Dates: start: 20060101

REACTIONS (6)
  - ANXIETY [None]
  - BIPOLAR DISORDER [None]
  - DEPRESSION [None]
  - INTENTIONAL OVERDOSE [None]
  - STRESS [None]
  - SUICIDE ATTEMPT [None]
